FAERS Safety Report 19072581 (Version 1)
Quarter: 2021Q1

REPORT INFORMATION
  Report Type: Spontaneous
  Country: US (occurrence: US)
  Receive Date: 20210330
  Receipt Date: 20210330
  Transmission Date: 20210420
  Serious: Yes (Hospitalization)
  Sender: FDA-Public Use
  Company Number: None

PATIENT
  Age: 63 Year
  Sex: Male
  Weight: 142.9 kg

DRUGS (2)
  1. CYTARABINE 1436MG [Suspect]
     Active Substance: CYTARABINE
     Dates: end: 20210216
  2. DAUNORUBICIN 465MG [Suspect]
     Active Substance: DAUNORUBICIN
     Dates: end: 20210214

REACTIONS (5)
  - Haemoperitoneum [None]
  - Splenic rupture [None]
  - Splenomegaly [None]
  - Bronchopulmonary aspergillosis [None]
  - Blood culture positive [None]

NARRATIVE: CASE EVENT DATE: 20210218
